FAERS Safety Report 5811437-8 (Version None)
Quarter: 2008Q3

REPORT INFORMATION
  Report Type: 
  Country: None (occurrence: None)
  Receive Date: 20080716
  Receipt Date: 20080702
  Transmission Date: 20090109
  Serious: Yes (Hospitalization, Other)
  Sender: FDA-Public Use
  Company Number: US-BAYER-200822024GPV

PATIENT
  Age: 26 Year
  Sex: Male

DRUGS (5)
  1. ALEMTUZUMAB [Suspect]
     Indication: IMMUNOSUPPRESSION
     Dosage: TOTAL DAILY DOSE: 30 MG
     Route: 042
  2. LISINOPRIL [Concomitant]
     Indication: ALPORT'S SYNDROME
     Route: 065
  3. MULTI-VITAMINS [Concomitant]
     Route: 065
  4. CALCIUM ACETATE [Concomitant]
     Route: 065
  5. TACROLIMUS [Concomitant]
     Indication: IMMUNOSUPPRESSION
     Route: 065

REACTIONS (9)
  - ACUTE RESPIRATORY FAILURE [None]
  - ANAEMIA [None]
  - DYSPNOEA [None]
  - HAEMOPTYSIS [None]
  - LARGE INTESTINE PERFORATION [None]
  - PULMONARY ALVEOLAR HAEMORRHAGE [None]
  - RENAL FAILURE ACUTE [None]
  - RENAL TUBULAR NECROSIS [None]
  - THROMBOCYTOPENIA [None]
